FAERS Safety Report 9973797 (Version 2)
Quarter: 2014Q4

REPORT INFORMATION
  Report Type: Spontaneous
  Country: FR (occurrence: FR)
  Receive Date: 20140306
  Receipt Date: 20141230
  Transmission Date: 20150529
  Serious: Yes (Other)
  Sender: FDA-Public Use
  Company Number: FR-ASTRAZENECA-2014SE14574

PATIENT
  Age: 74 Year
  Sex: Male

DRUGS (4)
  1. LEVACT [Concomitant]
     Active Substance: BENDAMUSTINE HYDROCHLORIDE
  2. INEXIUM [Suspect]
     Active Substance: ESOMEPRAZOLE
     Route: 048
     Dates: start: 2013, end: 2013
  3. MABTHERA [Concomitant]
     Active Substance: RITUXIMAB
  4. ALLOPURINOL. [Suspect]
     Active Substance: ALLOPURINOL
     Route: 048
     Dates: start: 2013, end: 2013

REACTIONS (4)
  - Drug reaction with eosinophilia and systemic symptoms [Recovered/Resolved]
  - Toxic skin eruption [Unknown]
  - Lung disorder [Unknown]
  - Pyrexia [Unknown]

NARRATIVE: CASE EVENT DATE: 20131120
